FAERS Safety Report 7829802-6 (Version None)
Quarter: 2011Q4

REPORT INFORMATION
  Report Type: 
  Country: None (occurrence: None)
  Receive Date: 20111018
  Receipt Date: 20111003
  Transmission Date: 20120403
  Serious: Yes (Hospitalization)
  Sender: FDA-Public Use
  Company Number: TCI2011A05163

PATIENT
  Age: 76 Year
  Sex: Male

DRUGS (3)
  1. SEIBOLE (MIGLITOL) [Concomitant]
  2. ACTOS [Suspect]
     Indication: DIABETES MELLITUS
     Dosage: 7.5 MG (T.5 MG, 1 IN 1 D) PER ORAL
     Route: 048
     Dates: start: 20071229, end: 20080127
  3. GLYBURIDE [Concomitant]

REACTIONS (1)
  - BLADDER CANCER [None]
